FAERS Safety Report 8413533 (Version 6)
Quarter: 2013Q2

REPORT INFORMATION
  Report Type: Spontaneous
  Country: US (occurrence: US)
  Receive Date: 20120218
  Receipt Date: 20130607
  Transmission Date: 20140414
  Serious: Yes (Other)
  Sender: FDA-Public Use
  Company Number: US-ASTRAZENECA-2011SE59258

PATIENT
  Age: 75 Year
  Sex: Female

DRUGS (3)
  1. PULMICORT RESPULES [Suspect]
     Indication: ASTHMA
     Dosage: HAD BEEN INHALING TWO VIALS INSTEAD OF ONE VIAL
     Route: 055
  2. PULMICORT RESPULES [Suspect]
     Indication: ASTHMA
     Route: 055
  3. PULMICORT RESPULES [Suspect]
     Indication: ASTHMA
     Dosage: GENERIC
     Route: 055

REACTIONS (10)
  - Pulmonary function test decreased [Unknown]
  - Asthma [Unknown]
  - Dyspnoea [Unknown]
  - Feeling abnormal [Unknown]
  - Malaise [Unknown]
  - Malaise [Unknown]
  - Malaise [Unknown]
  - Off label use [Unknown]
  - Drug dose omission [Unknown]
  - Intentional drug misuse [Unknown]
